FAERS Safety Report 8573420-1 (Version None)
Quarter: 2012Q3

REPORT INFORMATION
  Report Type: 
  Country: None (occurrence: None)
  Receive Date: 20120806
  Receipt Date: 20120727
  Transmission Date: 20120928
  Serious: Yes (Other)
  Sender: FDA-Public Use
  Company Number: BR-BAYER-2012-076244

PATIENT
  Age: 59 Year
  Sex: Male
  Weight: 74 kg

DRUGS (11)
  1. AMITRIPTYLINE HCL W/CHLORDIAZEPOXIDE HCL [Concomitant]
     Indication: NERVOUS SYSTEM DISORDER
     Dosage: 3 DF, QD
     Route: 048
     Dates: start: 20120301
  2. VEROLIME [Concomitant]
     Indication: LIVER DISORDER
     Dosage: 1 DF, BID
     Route: 048
     Dates: start: 20100101
  3. NEXAVAR [Suspect]
     Dosage: 1 TABLET TWICE PER DAY (400 MG PER DAY)
     Route: 048
     Dates: start: 20120701
  4. RADIOTHERAPY [Concomitant]
     Dosage: UNK
     Dates: start: 20120501
  5. OMEPRAZOLE [Concomitant]
     Indication: LIVER DISORDER
     Dosage: 1 DF, QD
     Route: 048
     Dates: start: 20100101
  6. DIPYRONE INJ [Concomitant]
     Indication: BACK PAIN
     Dosage: 40 GTT, QID
     Route: 048
     Dates: start: 20120301
  7. PROGRAF [Concomitant]
     Indication: LIVER DISORDER
     Dosage: 1 DF, BID
     Route: 048
     Dates: start: 20100101
  8. CHEMOTHERAPEUTICS NOS [Concomitant]
     Dosage: UNK
     Dates: start: 20120601
  9. MORPHINE SULFATE [Concomitant]
     Indication: BACK PAIN
     Dosage: 1 DF, QID
     Route: 048
     Dates: start: 20120301
  10. NEXAVAR [Suspect]
     Indication: METASTASES TO SPINE
     Dosage: 1 DF, QD
     Route: 048
     Dates: start: 20120501, end: 20120617
  11. ATENOLOL [Concomitant]
     Indication: LIVER DISORDER
     Dosage: 1 DF, QD
     Route: 048
     Dates: start: 20100101

REACTIONS (8)
  - SWELLING [None]
  - GROIN INFECTION [None]
  - GENERALISED OEDEMA [None]
  - FISTULA [None]
  - SECRETION DISCHARGE [None]
  - INFLAMMATION [None]
  - SKIN FISSURES [None]
  - ERYTHEMA [None]
